FAERS Safety Report 6355141-9 (Version None)
Quarter: 2009Q3

REPORT INFORMATION
  Report Type: 
  Country: None (occurrence: None)
  Receive Date: 20090914
  Receipt Date: 20090911
  Transmission Date: 20100115
  Serious: Yes (Other)
  Sender: FDA-Public Use
  Company Number: US-RB-020335-09

PATIENT
  Sex: Female

DRUGS (4)
  1. SUBOXONE [Suspect]
     Route: 060
     Dates: start: 20090827
  2. COLACE [Suspect]
     Indication: CONSTIPATION
     Dosage: DOSING INFORMATION UNKNOWN
     Route: 065
     Dates: start: 20090827
  3. XANAX [Suspect]
     Indication: ANXIETY
     Dosage: DOSING INFORMATION UNKNOWN
     Route: 065
     Dates: start: 20090827
  4. AMBIEN [Suspect]
     Indication: INSOMNIA
     Dosage: DOSING INFORMATION UNKNOWN
     Route: 065
     Dates: start: 20090827

REACTIONS (1)
  - CONVULSION [None]
